FAERS Safety Report 16920613 (Version 1)
Quarter: 2019Q4

REPORT INFORMATION
  Report Type: Spontaneous
  Country: US (occurrence: US)
  Receive Date: 20191015
  Receipt Date: 20191015
  Transmission Date: 20200122
  Serious: Yes (Hospitalization, Other)
  Sender: FDA-Public Use
  Company Number: US-TEVA-2019-US-1121666

PATIENT
  Age: 75 Year
  Sex: Female

DRUGS (16)
  1. NITROFURANTOIN (NITROFURANTOIN MONOHYDRATE/MACROCRYSTALS) [Interacting]
     Active Substance: NITROFURANTOIN\NITROFURANTOIN MONOHYDRATE
     Indication: URINARY TRACT INFECTION BACTERIAL
     Dosage: 200 MILLIGRAM DAILY; SHE RECEIVED THE FIRST DOSE 6 H BEFORE HER METHOTREXATE INFUSION, AND SHE RECEI
     Route: 048
  2. HYDROCODONE-ACETAMINOPHEN [Concomitant]
     Active Substance: ACETAMINOPHEN\HYDROCODONE
     Route: 065
  3. GABAPENTIN. [Concomitant]
     Active Substance: GABAPENTIN
     Route: 065
  4. ALBUTEROL. [Concomitant]
     Active Substance: ALBUTEROL
     Dosage: SALBUTAMOL HFA INHALER
     Route: 055
  5. URSODIOL. [Concomitant]
     Active Substance: URSODIOL
     Route: 065
  6. DOCUSATE [Concomitant]
     Active Substance: DOCUSATE
     Route: 065
  7. PROCHLORPERAZINE. [Concomitant]
     Active Substance: PROCHLORPERAZINE
     Route: 065
  8. SODIUM BICARBONATE. [Interacting]
     Active Substance: SODIUM BICARBONATE
     Indication: URINE ALKALINISATION THERAPY
     Dosage: IV FLUIDS CONTAINING SODIUM BICARBONATE
     Route: 042
  9. POLYETHYLENE GLYCOL [Concomitant]
     Active Substance: POLYETHYLENE GLYCOLS
     Route: 065
  10. METHOTREXATE. [Interacting]
     Active Substance: METHOTREXATE
     Indication: CENTRAL NERVOUS SYSTEM LYMPHOMA
     Dosage: 3 G/M2 ADMINISTERED OVER 4 H
     Route: 041
  11. SODIUM CHLORIDE. [Interacting]
     Active Substance: SODIUM CHLORIDE
     Indication: URINE ALKALINISATION THERAPY
     Dosage: NUMBER OF DOSAGES: 1
     Route: 065
  12. ONDANSETRON [Concomitant]
     Active Substance: ONDANSETRON
     Route: 065
  13. ACETAZOLAMIDE. [Suspect]
     Active Substance: ACETAZOLAMIDE
     Indication: URINE ALKALINISATION THERAPY
     Dosage: SHE RECEIVED TWO DOSES; NUMBER OF DOSAGES: 1
     Route: 048
  14. LEVOTHYROXINE. [Concomitant]
     Active Substance: LEVOTHYROXINE
     Route: 065
  15. AMITRIPTYLINE [Concomitant]
     Active Substance: AMITRIPTYLINE
     Route: 065
  16. LEUCOVORIN. [Concomitant]
     Active Substance: LEUCOVORIN
     Indication: CENTRAL NERVOUS SYSTEM LYMPHOMA
     Route: 065

REACTIONS (2)
  - Drug clearance decreased [Recovered/Resolved]
  - Drug interaction [Recovered/Resolved]
